FAERS Safety Report 6700007-5 (Version None)
Quarter: 2010Q2

REPORT INFORMATION
  Report Type: 
  Country: None (occurrence: None)
  Receive Date: 20100428
  Receipt Date: 20100419
  Transmission Date: 20101027
  Serious: Yes (Hospitalization)
  Sender: FDA-Public Use
  Company Number: BR-WYE-H14673110

PATIENT
  Sex: Female

DRUGS (2)
  1. EFFEXOR XR [Suspect]
     Route: 048
     Dates: start: 20090816
  2. WARFARIN SODIUM [Concomitant]
     Dosage: UNKNOWN
     Dates: start: 20010101

REACTIONS (1)
  - COAGULOPATHY [None]
